FAERS Safety Report 12715489 (Version 1)
Quarter: 2016Q3

REPORT INFORMATION
  Report Type: Spontaneous
  Country: US (occurrence: US)
  Receive Date: 20160906
  Receipt Date: 20160906
  Transmission Date: 20161109
  Serious: No
  Sender: FDA-Public Use
  Company Number: US-009507513-1608USA008405

PATIENT
  Sex: Female

DRUGS (1)
  1. ASMANEX [Suspect]
     Active Substance: MOMETASONE FUROATE
     Indication: ASTHMA
     Dosage: 220 MCG, ONE PUFF DAILY
     Route: 055

REACTIONS (4)
  - Incorrect dose administered [Unknown]
  - Wheezing [Recovering/Resolving]
  - Product quality issue [Unknown]
  - Cough [Recovering/Resolving]
